FAERS Safety Report 6691980-2 (Version None)
Quarter: 2010Q2

REPORT INFORMATION
  Report Type: 
  Country: None (occurrence: None)
  Receive Date: 20100422
  Receipt Date: 20100414
  Transmission Date: 20101027
  Serious: Yes (Death, Hospitalization, Other)
  Sender: FDA-Public Use
  Company Number: PHHY2010JP18354

PATIENT
  Sex: Female
  Weight: 55 kg

DRUGS (2)
  1. DIOVAN [Suspect]
     Indication: HYPERTENSION
     Dosage: 80 MG, QOD
     Dates: start: 20090302
  2. PRAVASTATIN SODIUM [Concomitant]
     Dosage: 10 MG
     Route: 048
     Dates: start: 20090220

REACTIONS (3)
  - BLOOD GLUCOSE INCREASED [None]
  - BLOOD PRESSURE DECREASED [None]
  - SUBARACHNOID HAEMORRHAGE [None]
